FAERS Safety Report 14493942 (Version 1)
Quarter: 2018Q1

REPORT INFORMATION
  Report Type: Spontaneous
  Country: US (occurrence: US)
  Receive Date: 20180206
  Receipt Date: 20180206
  Transmission Date: 20180509
  Serious: No
  Sender: FDA-Public Use
  Company Number: US-AMGEN-USASP2017057089

PATIENT
  Sex: Female

DRUGS (5)
  1. NEULASTA [Suspect]
     Active Substance: PEGFILGRASTIM
     Indication: PRODUCT USED FOR UNKNOWN INDICATION
     Dosage: UNK
     Route: 065
     Dates: start: 20170323
  2. METOPROLOL TARTRATE. [Concomitant]
     Active Substance: METOPROLOL TARTRATE
     Dosage: UNK, LOW DOSE
  3. BENDAMUSTINE [Concomitant]
     Active Substance: BENDAMUSTINE
     Indication: LYMPHOMA
     Dosage: UNK UNK, QMO
     Dates: start: 201702
  4. RITUXAN [Concomitant]
     Active Substance: RITUXIMAB
     Indication: LYMPHOMA
     Dosage: UNK UNK, QMO
     Dates: start: 201702
  5. RETAINE PM [Concomitant]
     Active Substance: MINERAL OIL\PETROLATUM
     Dosage: UNK

REACTIONS (4)
  - Dry eye [Not Recovered/Not Resolved]
  - Eye irritation [Not Recovered/Not Resolved]
  - Photophobia [Not Recovered/Not Resolved]
  - Discomfort [Not Recovered/Not Resolved]

NARRATIVE: CASE EVENT DATE: 2017
